FAERS Safety Report 7606081-6 (Version None)
Quarter: 2011Q3

REPORT INFORMATION
  Report Type: 
  Country: None (occurrence: None)
  Receive Date: 20110713
  Receipt Date: 20110706
  Transmission Date: 20111222
  Serious: Yes (Death)
  Sender: FDA-Public Use
  Company Number: JP-ELI_LILLY_AND_COMPANY-JP201107001522

PATIENT
  Age: 55 Year
  Sex: Male

DRUGS (3)
  1. LISPRO 25LIS75NPL [Suspect]
     Dosage: 600 UNK, UNK
     Route: 058
  2. ZOLPIDEM [Concomitant]
  3. LISPRO 25LIS75NPL [Suspect]
     Indication: TYPE 2 DIABETES MELLITUS
     Route: 058

REACTIONS (2)
  - DEATH [None]
  - INCORRECT DOSE ADMINISTERED [None]
